FAERS Safety Report 23852528 (Version 1)
Quarter: 2024Q2

REPORT INFORMATION
  Report Type: Spontaneous
  Country: US (occurrence: None)
  Receive Date: 20240513
  Receipt Date: 20240513
  Transmission Date: 20240715
  Serious: Yes (Other)
  Sender: FDA-Public Use
  Company Number: None

PATIENT
  Age: 43 Year
  Sex: Male
  Weight: 72.9 kg

DRUGS (7)
  1. MIRTAZAPINE [Suspect]
     Active Substance: MIRTAZAPINE
     Indication: Anxiety
     Dosage: 1 TABLET AT BEDTIME ORAL
     Route: 048
     Dates: start: 20240212
  2. MIRTAZAPINE [Suspect]
     Active Substance: MIRTAZAPINE
     Indication: Depression
  3. MIRTAZAPINE [Suspect]
     Active Substance: MIRTAZAPINE
     Indication: Insomnia
  4. ATORVASTATIN [Concomitant]
  5. PROPRANOLOL [Concomitant]
  6. Daily Multivitmin [Concomitant]
  7. Vitamin D + K2 [Concomitant]

REACTIONS (7)
  - Drug withdrawal syndrome [None]
  - Insomnia [None]
  - Anxiety [None]
  - Emotional disorder [None]
  - Product complaint [None]
  - Drug dependence [None]
  - Anxiety [None]

NARRATIVE: CASE EVENT DATE: 20240508
